FAERS Safety Report 7669689-8 (Version None)
Quarter: 2011Q3

REPORT INFORMATION
  Report Type: 
  Country: None (occurrence: None)
  Receive Date: 20110808
  Receipt Date: 20110729
  Transmission Date: 20111222
  Serious: Yes (Other)
  Sender: FDA-Public Use
  Company Number: CN-ASTRAZENECA-2011SE45150

PATIENT
  Age: 23 Year
  Sex: Female

DRUGS (2)
  1. LIDOCAINE [Suspect]
     Dosage: 50 MG IN SALINE SOLUTION OF 20 ML
     Route: 042
  2. PROCAINE HYDROCHLORIDE INJ [Concomitant]
     Indication: LOCAL ANAESTHESIA

REACTIONS (2)
  - GRAND MAL CONVULSION [None]
  - HEMIPLEGIA [None]
